FAERS Safety Report 6788887-9 (Version None)
Quarter: 2010Q2

REPORT INFORMATION
  Report Type: 
  Country: None (occurrence: None)
  Receive Date: 20100623
  Receipt Date: 20080611
  Transmission Date: 20101027
  Serious: No
  Sender: FDA-Public Use
  Company Number: US-PFIZER INC-2008049694

PATIENT
  Sex: Female

DRUGS (2)
  1. XALATAN [Suspect]
  2. STOMATOLOGICALS, MOUTH PREPARATIONS [Suspect]

REACTIONS (6)
  - APHONIA [None]
  - DYSPNOEA [None]
  - GASTROOESOPHAGEAL REFLUX DISEASE [None]
  - HYPERSENSITIVITY [None]
  - PAROSMIA [None]
  - SPEECH DISORDER [None]
